FAERS Safety Report 5488493-2 (Version None)
Quarter: 2007Q4

REPORT INFORMATION
  Report Type: 
  Country: None (occurrence: None)
  Receive Date: 20071017
  Receipt Date: 20071009
  Transmission Date: 20080405
  Serious: Yes (Hospitalization)
  Sender: FDA-Public Use
  Company Number: US-AMGEN-US168189

PATIENT
  Sex: Male

DRUGS (10)
  1. PANITUMUMAB [Suspect]
     Indication: COLORECTAL CANCER
     Route: 042
     Dates: start: 20051206
  2. NEULASTA [Suspect]
     Indication: CHEMOTHERAPY
     Route: 058
     Dates: start: 20061207, end: 20061207
  3. AVASTIN [Suspect]
     Route: 042
     Dates: start: 20060223, end: 20060223
  4. AVASTIN [Suspect]
     Dates: start: 20060108, end: 20060108
  5. LOVENOX [Concomitant]
     Route: 065
     Dates: start: 20070110, end: 20070110
  6. FLUOROURACIL [Concomitant]
     Route: 040
     Dates: start: 20060223, end: 20060224
  7. FLUOROURACIL [Concomitant]
     Route: 042
     Dates: start: 20060223, end: 20060224
  8. LEUCOVORIN [Concomitant]
     Route: 042
     Dates: start: 20060223, end: 20060224
  9. OXALIPLATIN [Concomitant]
     Route: 042
     Dates: start: 20060223, end: 20060223
  10. VICODIN [Concomitant]
     Route: 065

REACTIONS (10)
  - CATHETER SITE ERYTHEMA [None]
  - CATHETER SITE OEDEMA [None]
  - CATHETER THROMBOSIS [None]
  - DIARRHOEA [None]
  - GASTROINTESTINAL TOXICITY [None]
  - HAEMATOTOXICITY [None]
  - HYPERCOAGULATION [None]
  - PLEURAL EFFUSION [None]
  - PNEUMONIA [None]
  - PULMONARY EMBOLISM [None]
